FAERS Safety Report 5651997-3 (Version None)
Quarter: 2008Q1

REPORT INFORMATION
  Report Type: 
  Country: None (occurrence: None)
  Receive Date: 20080305
  Receipt Date: 20080227
  Transmission Date: 20080703
  Serious: Yes (Other)
  Sender: FDA-Public Use
  Company Number: US-PFIZER INC-2008010426

PATIENT
  Sex: Female

DRUGS (1)
  1. XALATAN [Suspect]
     Indication: ANGLE CLOSURE GLAUCOMA

REACTIONS (2)
  - EYE LASER SURGERY [None]
  - OPEN ANGLE GLAUCOMA [None]
